FAERS Safety Report 22355313 (Version 4)
Quarter: 2023Q4

REPORT INFORMATION
  Report Type: Report from Study
  Country: US (occurrence: US)
  Receive Date: 20230523
  Receipt Date: 20231122
  Transmission Date: 20240110
  Serious: Yes (Death, Other)
  Sender: FDA-Public Use
  Company Number: US-JNJFOC-20230548127

PATIENT
  Age: 75 Year
  Sex: Male
  Weight: 79.1 kg

DRUGS (21)
  1. CILTACABTAGENE AUTOLEUCEL [Suspect]
     Active Substance: CILTACABTAGENE AUTOLEUCEL
     Indication: Plasma cell myeloma
     Dosage: 0.6 X10^6 CAR POSITIVE T CELLS?TOTAL NUMBER OF CELLS ?ADMINISTERED:70, TOTAL CELLS EXPONENT VALUE: 6
     Route: 042
     Dates: start: 20220718, end: 20220718
  2. ZOCOR [Concomitant]
     Active Substance: SIMVASTATIN
     Route: 048
  3. NORVASC [Concomitant]
     Active Substance: AMLODIPINE BESYLATE
     Route: 048
  4. ROCEPHIN [Concomitant]
     Active Substance: CEFTRIAXONE SODIUM
     Route: 042
  5. PROCARDIA [Concomitant]
     Active Substance: NIFEDIPINE
     Route: 048
  6. PRAVACHOL [Concomitant]
     Active Substance: PRAVASTATIN SODIUM
     Route: 048
  7. DUONEB [Concomitant]
     Active Substance: ALBUTEROL SULFATE\IPRATROPIUM BROMIDE
     Dosage: INHALATION
  8. VANCOMYCIN HYDROCHLORIDE [Concomitant]
     Active Substance: VANCOMYCIN HYDROCHLORIDE
     Route: 042
  9. SODIUM CHLORIDE [Concomitant]
     Active Substance: SODIUM CHLORIDE
     Route: 065
  10. SODIUM CHLORIDE [Concomitant]
     Active Substance: SODIUM CHLORIDE
     Route: 065
  11. MAXIPIME [Concomitant]
     Active Substance: CEFEPIME HYDROCHLORIDE
     Route: 042
  12. POVIDONE-IODINE [Concomitant]
     Active Substance: POVIDONE-IODINE
     Indication: Sepsis
     Dosage: NASAL
  13. FENTANYL CITRATE [Concomitant]
     Active Substance: FENTANYL CITRATE
     Dosage: ASDIR
     Route: 042
  14. DIPRIVAN [Concomitant]
     Active Substance: ISOPROPYL ALCOHOL\PROPOFOL
     Dosage: ASDIR
     Route: 042
  15. SOLU-CORTEF [Concomitant]
     Active Substance: HYDROCORTISONE SODIUM SUCCINATE
     Route: 042
  16. SODIUM BICARBONATE [Concomitant]
     Active Substance: SODIUM BICARBONATE
     Route: 042
  17. VASOPRESSIN [Concomitant]
     Active Substance: VASOPRESSIN
     Dosage: ASDIR, 40 UNITS
     Route: 042
  18. NOREPINEPHRINE [Concomitant]
     Active Substance: NOREPINEPHRINE
     Dosage: ASDIR
     Route: 042
  19. AMIDATE [ETOMIDATE] [Concomitant]
     Route: 042
  20. ZEMURON [Concomitant]
     Active Substance: ROCURONIUM BROMIDE
     Route: 042
  21. PHENYLEPHRINE [Concomitant]
     Active Substance: PHENYLEPHRINE HYDROCHLORIDE
     Dosage: ASDIR
     Route: 042

REACTIONS (7)
  - Cardiac failure [Fatal]
  - Infection [Fatal]
  - Acute kidney injury [Unknown]
  - Cytokine release syndrome [Unknown]
  - Decreased appetite [Unknown]
  - Fatigue [Unknown]
  - Confusional state [Unknown]

NARRATIVE: CASE EVENT DATE: 20220722
